FAERS Safety Report 5843125-6 (Version None)
Quarter: 2008Q3

REPORT INFORMATION
  Report Type: 
  Country: None (occurrence: None)
  Receive Date: 20080813
  Receipt Date: 20080806
  Transmission Date: 20090109
  Serious: Yes (Other)
  Sender: FDA-Public Use
  Company Number: US-BAYER-200813737NA

PATIENT
  Age: 28 Year
  Sex: Female

DRUGS (2)
  1. MIRENA [Suspect]
     Indication: DRUG USE FOR UNKNOWN INDICATION
     Route: 015
     Dates: start: 20080114, end: 20080212
  2. MOTRIN [Concomitant]
     Indication: PELVIC PAIN

REACTIONS (4)
  - DYSMENORRHOEA [None]
  - PELVIC PAIN [None]
  - PYREXIA [None]
  - UTERINE RUPTURE [None]
